FAERS Safety Report 14839469 (Version 2)
Quarter: 2018Q2

REPORT INFORMATION
  Report Type: Report from Study
  Country: US (occurrence: US)
  Receive Date: 20180502
  Receipt Date: 20180618
  Transmission Date: 20180711
  Serious: No
  Sender: FDA-Public Use
  Company Number: US-BIOGEN-2018BI00568872

PATIENT
  Sex: Female

DRUGS (1)
  1. TECFIDERA [Suspect]
     Active Substance: DIMETHYL FUMARATE
     Indication: MULTIPLE SCLEROSIS
     Dosage: MAINTENANCE DOSE
     Route: 048
     Dates: start: 201710

REACTIONS (9)
  - Optic neuritis [Unknown]
  - Dry mouth [Unknown]
  - Thirst [Unknown]
  - Central nervous system lesion [Unknown]
  - Drug dose omission [Unknown]
  - Flushing [Unknown]
  - Flatulence [Unknown]
  - Tooth fracture [Unknown]
  - Abdominal discomfort [Unknown]
